FAERS Safety Report 8573315 (Version 2)
Quarter: 2012Q4

REPORT INFORMATION
  Report Type: Spontaneous
  Country: DK (occurrence: None)
  Receive Date: 20120515
  Receipt Date: 20120830
  Transmission Date: 20130627
  Serious: Yes (Other)
  Sender: FDA-Public Use
  Company Number: 2012MA005995

PATIENT
  Age: 74 Year
  Sex: Female

DRUGS (6)
  1. GEMCITABINE HYDROCHLORIDE [Suspect]
     Indication: OESOPHAGEAL SQUAMOUS CELL CARCINOMA
     Dosage: 2000 MG, IV
     Route: 042
     Dates: start: 20120403
  2. ASPIRIN [Concomitant]
  3. ADALAT CC [Concomitant]
  4. ATENOLOL [Concomitant]
  5. RAMIPRIL [Concomitant]
  6. CENTYL K [Concomitant]

REACTIONS (4)
  - DYSARTHRIA [None]
  - VISION BLURRED [None]
  - HEADACHE [None]
  - MALAISE [None]
